FAERS Safety Report 8996687 (Version 2)
Quarter: 2013Q1

REPORT INFORMATION
  Report Type: Spontaneous
  Country: CH (occurrence: CH)
  Receive Date: 20130104
  Receipt Date: 20130130
  Transmission Date: 20140127
  Serious: Yes (Hospitalization)
  Sender: FDA-Public Use
  Company Number: PHHY2012CH118026

PATIENT
  Sex: Male

DRUGS (1)
  1. GILENYA [Suspect]
     Indication: RELAPSING-REMITTING MULTIPLE SCLEROSIS
     Dosage: UNK UKN, UNK
     Route: 048
     Dates: start: 20121217

REACTIONS (3)
  - Atrioventricular block [Unknown]
  - Electrocardiogram QRS complex abnormal [Unknown]
  - Sinus bradycardia [Unknown]
